FAERS Safety Report 4444263-5 (Version None)
Quarter: 2004Q3

REPORT INFORMATION
  Report Type: 
  Country: None (occurrence: None)
  Receive Date: 20040902
  Receipt Date: 20040817
  Transmission Date: 20050211
  Serious: Yes (Hospitalization, Other)
  Sender: FDA-Public Use
  Company Number: USA040875788

PATIENT
  Age: 35 Year
  Sex: Female
  Weight: 105 kg

DRUGS (1)
  1. HUMALOG [Suspect]
     Dates: start: 20000101

REACTIONS (6)
  - BLOOD GLUCOSE INCREASED [None]
  - HYPOGLYCAEMIA [None]
  - INJECTION SITE HYPERSENSITIVITY [None]
  - LOSS OF CONSCIOUSNESS [None]
  - ROAD TRAFFIC ACCIDENT [None]
  - WEIGHT DECREASED [None]
